FAERS Safety Report 4341197-1 (Version None)
Quarter: 2004Q1

REPORT INFORMATION
  Report Type: 
  Country: None (occurrence: None)
  Receive Date: 20040329
  Receipt Date: 20031208
  Transmission Date: 20041129
  Serious: No
  Sender: FDA-Public Use
  Company Number: 03P-163-0244236-00

PATIENT
  Age: 34 Year
  Sex: Female

DRUGS (12)
  1. HUMIRA [Suspect]
     Indication: RHEUMATOID ARTHRITIS
     Dosage: 40 MG, 1 IN 2 WK, SUBCUTANEOUS
     Route: 058
     Dates: start: 20030301
  2. VICODIN [Concomitant]
  3. TRAMADOL HCL [Concomitant]
  4. PIROXICAM [Concomitant]
  5. METHYLPREDNISOLONE [Concomitant]
  6. METHOTREXATE SODIUM [Concomitant]
  7. PAROXETINE HCL [Concomitant]
  8. CETIRIZINE HCL [Concomitant]
  9. FOLIC ACID [Concomitant]
  10. FLUTICASONE PROPIONATE [Concomitant]
  11. TRAZODONE HCL [Concomitant]
  12. TETRACYCLINE HYDROCHLORIDE [Concomitant]

REACTIONS (4)
  - CONDITION AGGRAVATED [None]
  - FIBROMYALGIA [None]
  - OEDEMA [None]
  - WEIGHT INCREASED [None]
